FAERS Safety Report 17723492 (Version 3)
Quarter: 2020Q2

REPORT INFORMATION
  Report Type: Report from Study
  Country: CA (occurrence: CA)
  Receive Date: 20200429
  Receipt Date: 20200611
  Transmission Date: 20200714
  Serious: Yes (Other)
  Sender: FDA-Public Use
  Company Number: CA-JNJFOC-20200431346

PATIENT
  Age: 75 Year
  Sex: Female
  Weight: 63.7 kg

DRUGS (1)
  1. REMICADE [Suspect]
     Active Substance: INFLIXIMAB
     Indication: CROHN^S DISEASE
     Route: 042
     Dates: start: 20090910, end: 20200601

REACTIONS (5)
  - Renal failure [Unknown]
  - Skin cancer [Unknown]
  - Cardiac failure [Unknown]
  - Neutropenia [Unknown]
  - Crohn^s disease [Unknown]

NARRATIVE: CASE EVENT DATE: 20200422
